FAERS Safety Report 21698408 (Version 1)
Quarter: 2022Q4

REPORT INFORMATION
  Report Type: Spontaneous
  Country: US (occurrence: US)
  Receive Date: 20221208
  Receipt Date: 20221208
  Transmission Date: 20230113
  Serious: No
  Sender: FDA-Public Use
  Company Number: US-BoehringerIngelheim-2022-BI-206969

PATIENT
  Sex: Female

DRUGS (1)
  1. JARDIANCE [Suspect]
     Active Substance: EMPAGLIFLOZIN
     Indication: Product used for unknown indication
     Dates: start: 202211

REACTIONS (6)
  - Abdominal pain upper [Unknown]
  - Constipation [Unknown]
  - Rash [Unknown]
  - Hyperchlorhydria [Unknown]
  - Incontinence [Unknown]
  - Fatigue [Unknown]
